FAERS Safety Report 5626155-9 (Version None)
Quarter: 2008Q1

REPORT INFORMATION
  Report Type: 
  Country: None (occurrence: None)
  Receive Date: 20080213
  Receipt Date: 20080213
  Transmission Date: 20080703
  Serious: Yes (Life-Threatening)
  Sender: FDA-Public Use
  Company Number: None

PATIENT
  Age: 37 Year
  Sex: Female

DRUGS (2)
  1. FENTANYL TRANSDERMAL SYSTEM [Suspect]
     Indication: CANCER PAIN
     Dosage: 100 MCG EXTRA DISCOVERED 325MCG Q72HR ORDERED DOSE BUT RECEIVED 425 MG
     Dates: start: 20071214, end: 20071218
  2. FENTANYL TRANSDERMAL SYSTEM [Suspect]
     Indication: OVARIAN CANCER
     Dosage: 100 MCG EXTRA DISCOVERED 325MCG Q72HR ORDERED DOSE BUT RECEIVED 425 MG
     Dates: start: 20071214, end: 20071218

REACTIONS (1)
  - INCORRECT DOSE ADMINISTERED [None]
